FAERS Safety Report 23621986 (Version 1)
Quarter: 2024Q1

REPORT INFORMATION
  Report Type: Spontaneous
  Country: US (occurrence: None)
  Receive Date: 20240311
  Receipt Date: 20240311
  Transmission Date: 20240410
  Serious: Yes (unspecified)
  Sender: FDA-Public Use
  Company Number: None

PATIENT
  Age: 38 Year
  Sex: Female

DRUGS (1)
  1. RINVOQ [Suspect]
     Active Substance: UPADACITINIB
     Indication: Product used for unknown indication
     Dosage: 30MG QD

REACTIONS (6)
  - Anaphylactic shock [None]
  - Swelling face [None]
  - Vomiting [None]
  - Diarrhoea [None]
  - Alopecia [None]
  - Loss of consciousness [None]
